FAERS Safety Report 5933086-3 (Version None)
Quarter: 2008Q4

REPORT INFORMATION
  Report Type: 
  Country: None (occurrence: None)
  Receive Date: 20081028
  Receipt Date: 20081017
  Transmission Date: 20090506
  Serious: Yes (Death, Life-Threatening, Other)
  Sender: FDA-Public Use
  Company Number: GB-JNJFOC-20061101594

PATIENT
  Sex: Female
  Weight: 68 kg

DRUGS (15)
  1. REMICADE [Suspect]
     Indication: RHEUMATOID ARTHRITIS
     Route: 042
  2. SULFASALAZINE [Concomitant]
     Route: 065
  3. METHOTREXATE [Concomitant]
     Route: 065
  4. PREDNISONE TAB [Concomitant]
     Route: 065
  5. CLOPIDOGREL [Concomitant]
     Route: 065
  6. ACETAMINOPHEN W/ CODEINE [Concomitant]
     Route: 065
  7. FERROUS SULFATE TAB [Concomitant]
     Route: 065
  8. FOLIC ACID [Concomitant]
     Route: 065
  9. FOSAMAX [Concomitant]
     Route: 065
  10. FRUSEMIDE [Concomitant]
     Route: 065
  11. GLICLAZIDE [Concomitant]
     Route: 065
  12. HYDROXYCHLOROQUINE [Concomitant]
     Route: 065
  13. LANSOPRAZOLE [Concomitant]
     Route: 065
  14. METFORMIN HCL [Concomitant]
     Route: 065
  15. SLOW-K [Concomitant]
     Route: 065

REACTIONS (1)
  - NON-SMALL CELL LUNG CANCER METASTATIC [None]
